FAERS Safety Report 23592651 (Version 1)
Quarter: 2024Q1

REPORT INFORMATION
  Report Type: Spontaneous
  Country: ES (occurrence: ES)
  Receive Date: 20240304
  Receipt Date: 20240304
  Transmission Date: 20240409
  Serious: Yes (Hospitalization)
  Sender: FDA-Public Use
  Company Number: None

PATIENT
  Age: 43 Year
  Sex: Male

DRUGS (3)
  1. MYCOPHENOLATE MOFETIL [Interacting]
     Active Substance: MYCOPHENOLATE MOFETIL
     Indication: Renal transplant
     Dosage: (7330LM)
     Route: 048
     Dates: start: 2021
  2. TACROLIMUS [Interacting]
     Active Substance: TACROLIMUS
     Indication: Renal transplant
     Dosage: (2694A)
     Route: 048
     Dates: start: 2021
  3. PREDNISONE [Interacting]
     Active Substance: PREDNISONE
     Indication: Renal transplant
     Dosage: (886A)
     Route: 048
     Dates: start: 2021

REACTIONS (1)
  - Arthritis bacterial [Recovered/Resolved]

NARRATIVE: CASE EVENT DATE: 20231130
